FAERS Safety Report 21860579 (Version 1)
Quarter: 2023Q1

REPORT INFORMATION
  Report Type: Spontaneous
  Country: US (occurrence: None)
  Receive Date: 20230113
  Receipt Date: 20230113
  Transmission Date: 20230417
  Serious: Yes (Hospitalization)
  Sender: FDA-Public Use
  Company Number: None

PATIENT
  Sex: Male
  Weight: 104.3 kg

DRUGS (24)
  1. MAVYRET [Suspect]
     Active Substance: GLECAPREVIR\PIBRENTASVIR
     Indication: Hepatitis C
     Dosage: FREQUENCY : DAILY;?
     Route: 048
     Dates: start: 20200124, end: 20200416
  2. ALENDRONATE [Concomitant]
  3. ALLOPURINOL [Concomitant]
     Active Substance: ALLOPURINOL
  4. AMLODIPINE [Concomitant]
     Active Substance: AMLODIPINE BESYLATE
  5. ASPIRIN [Concomitant]
     Active Substance: ASPIRIN
  6. CALCIUM CARBONATE [Concomitant]
     Active Substance: CALCIUM CARBONATE
  7. CHOLECALCIFEROL [Concomitant]
     Active Substance: CHOLECALCIFEROL
  8. COLCHICINE [Concomitant]
     Active Substance: COLCHICINE
  9. DAPSONE [Concomitant]
     Active Substance: DAPSONE
  10. FLUCONAZOLE [Concomitant]
     Active Substance: FLUCONAZOLE
  11. ISOPHANE INSULIN [Concomitant]
     Active Substance: INSULIN NOS
  12. INSULIN LISPRO [Concomitant]
     Active Substance: INSULIN LISPRO
  13. MAGNESIUM OXIDE [Concomitant]
     Active Substance: MAGNESIUM OXIDE
  14. methlmazole [Concomitant]
  15. MIRTAZAPINE [Concomitant]
     Active Substance: MIRTAZAPINE
  16. VITAMINS [Concomitant]
     Active Substance: VITAMINS
  17. MYCOPHENOLATE MOFETIL [Concomitant]
     Active Substance: MYCOPHENOLATE MOFETIL
  18. MYCOPHENOLATE MOFETIL [Concomitant]
     Active Substance: MYCOPHENOLATE MOFETIL
  19. PANTOPRAZOLE [Concomitant]
     Active Substance: PANTOPRAZOLE
  20. PRAVASTATIN [Concomitant]
     Active Substance: PRAVASTATIN
  21. PREDNISONE [Concomitant]
     Active Substance: PREDNISONE
  22. TACROLIMUS [Concomitant]
     Active Substance: TACROLIMUS
  23. TORSEMIDE [Concomitant]
     Active Substance: TORSEMIDE
  24. VALGANCICLOVIR [Concomitant]
     Active Substance: VALGANCICLOVIR

REACTIONS (2)
  - Klebsiella bacteraemia [None]
  - Urinary tract infection [None]

NARRATIVE: CASE EVENT DATE: 20200207
